FAERS Safety Report 6464532-7 (Version None)
Quarter: 2009Q4

REPORT INFORMATION
  Report Type: 
  Country: None (occurrence: None)
  Receive Date: 20091201
  Receipt Date: 20091119
  Transmission Date: 20100525
  Serious: Yes (Other)
  Sender: FDA-Public Use
  Company Number: IE-PFIZER INC-2009282282

PATIENT
  Age: 65 Year
  Sex: Male
  Weight: 100 kg

DRUGS (6)
  1. CHAMPIX [Suspect]
     Indication: SMOKING CESSATION THERAPY
     Dosage: 1 MG, 2X/DAY
     Route: 048
     Dates: start: 20070101, end: 20070601
  2. ACETYLSALICYLIC ACID [Concomitant]
     Dosage: 75 UNK, UNK
     Route: 048
     Dates: start: 20061201
  3. PLAVIX [Concomitant]
     Dosage: 75 UNK, UNK
     Route: 048
     Dates: start: 20061201, end: 20090601
  4. METOPROLOL TARTRATE [Concomitant]
     Dosage: UNK
     Route: 048
     Dates: start: 20061201
  5. LIPITOR [Concomitant]
     Dosage: 10 MG, UNK
     Route: 048
     Dates: start: 20061201
  6. ALCOHOL [Concomitant]
     Dosage: 20-30 UNITS

REACTIONS (3)
  - DELIRIUM TREMENS [None]
  - DRUG WITHDRAWAL SYNDROME [None]
  - NIGHTMARE [None]
